FAERS Safety Report 11508461 (Version 1)
Quarter: 2015Q3

REPORT INFORMATION
  Report Type: Spontaneous
  Country: US (occurrence: US)
  Receive Date: 20150903
  Receipt Date: 20150903
  Transmission Date: 20151125
  Serious: No
  Sender: FDA-Public Use
  Company Number: US-ELI_LILLY_AND_COMPANY-US200912002600

PATIENT
  Age: 81 Year
  Sex: Female

DRUGS (4)
  1. HUMALOG [Suspect]
     Active Substance: INSULIN LISPRO
     Dosage: UNK, 4/D
  2. HUMALOG [Suspect]
     Active Substance: INSULIN LISPRO
     Dates: start: 200910, end: 2009
  3. HUMALOG [Suspect]
     Active Substance: INSULIN LISPRO
     Dosage: 12 U, UNK
     Dates: start: 20091209, end: 20091209
  4. LANTUS [Concomitant]
     Active Substance: INSULIN GLARGINE
     Dosage: 34 U, DAILY (1/D)

REACTIONS (2)
  - Drug prescribing error [Recovered/Resolved]
  - Wrong technique in product usage process [Recovered/Resolved]

NARRATIVE: CASE EVENT DATE: 200910
